FAERS Safety Report 5570099-8 (Version None)
Quarter: 2007Q4

REPORT INFORMATION
  Report Type: 
  Country: None (occurrence: None)
  Receive Date: 20071218
  Receipt Date: 20071203
  Transmission Date: 20080405
  Serious: Yes (Hospitalization)
  Sender: FDA-Public Use
  Company Number: S07-FRA-06324

PATIENT
  Age: 88 Year
  Sex: Female

DRUGS (2)
  1. ESCITALOPRAM [Suspect]
     Dosage: 20 MG QD PO
     Route: 048
     Dates: start: 20070831, end: 20070917
  2. ALLOPURINOL [Suspect]
     Dosage: 300 MG QD PO
     Route: 048
     Dates: start: 20070803, end: 20070914

REACTIONS (4)
  - RASH ERYTHEMATOUS [None]
  - RASH MACULAR [None]
  - RASH MORBILLIFORM [None]
  - TOXIC SKIN ERUPTION [None]
